FAERS Safety Report 16465358 (Version 4)
Quarter: 2019Q3

REPORT INFORMATION
  Report Type: Report from Study
  Country: US (occurrence: US)
  Receive Date: 20190621
  Receipt Date: 20190820
  Transmission Date: 20191004
  Serious: Yes (Death, Hospitalization)
  Sender: FDA-Public Use
  Company Number: US-ACTELION-A-NJ2019-192068

PATIENT
  Age: 75 Year
  Sex: Female
  Weight: 64.85 kg

DRUGS (7)
  1. VELETRI [Suspect]
     Active Substance: EPOPROSTENOL
     Indication: PULMONARY HYPERTENSION
     Dosage: 10 NG/KG, PER MIN
     Route: 042
     Dates: start: 20190606
  2. VELETRI [Suspect]
     Active Substance: EPOPROSTENOL
     Dosage: 23 UNK
     Route: 042
  3. VELETRI [Suspect]
     Active Substance: EPOPROSTENOL
     Dosage: 12 NG/KG, PER MIN
     Route: 042
  4. VELETRI [Suspect]
     Active Substance: EPOPROSTENOL
     Dosage: 21 NG/KG, PER MIN
     Route: 042
  5. VELETRI [Suspect]
     Active Substance: EPOPROSTENOL
     Dosage: 17 NG/KG, PER MIN
     Route: 042
  6. ELIQUIS [Concomitant]
     Active Substance: APIXABAN
  7. TADALAFIL. [Concomitant]
     Active Substance: TADALAFIL

REACTIONS (15)
  - Oedema [Unknown]
  - Pain [Unknown]
  - Catheter site erythema [Recovered/Resolved]
  - Headache [Unknown]
  - Abdominal discomfort [Unknown]
  - Hypotension [Unknown]
  - Diarrhoea [Unknown]
  - Pain in jaw [Unknown]
  - Death [Fatal]
  - Dyspnoea [Unknown]
  - Abdominal distension [Unknown]
  - Catheter site pruritus [Recovered/Resolved]
  - Somnolence [Unknown]
  - Fatigue [Unknown]
  - Nausea [Unknown]

NARRATIVE: CASE EVENT DATE: 20190606
